FAERS Safety Report 12697196 (Version 1)
Quarter: 2016Q3

REPORT INFORMATION
  Report Type: Spontaneous
  Country: US (occurrence: None)
  Receive Date: 20160829
  Receipt Date: 20160829
  Transmission Date: 20161109
  Serious: Yes (Life-Threatening, Hospitalization)
  Sender: FDA-Public Use
  Company Number: None

PATIENT
  Age: 55 Year
  Sex: Male
  Weight: 114 kg

DRUGS (1)
  1. ROCURONIUM BROMIDE. [Suspect]
     Active Substance: ROCURONIUM BROMIDE
     Indication: SURGERY
     Dates: start: 20160721, end: 20160721

REACTIONS (4)
  - Respiratory failure [None]
  - Tachycardia [None]
  - Hypotension [None]
  - Anaphylactic reaction [None]

NARRATIVE: CASE EVENT DATE: 20160721
